FAERS Safety Report 6820253-X (Version None)
Quarter: 2010Q3

REPORT INFORMATION
  Report Type: 
  Country: None (occurrence: None)
  Receive Date: 20100707
  Receipt Date: 20100628
  Transmission Date: 20110219
  Serious: Yes (Death, Other)
  Sender: FDA-Public Use
  Company Number: GXKR2010TR07167

PATIENT
  Age: 36 Year
  Sex: Male

DRUGS (4)
  1. RISPERIDONE [Suspect]
     Indication: SCHIZOPHRENIA
     Dosage: 4 MG, UNK
     Route: 048
  2. HALDOL (NGX) [Interacting]
     Indication: PSYCHOTIC DISORDER
     Route: 030
  3. CHLORPROMAZINE [Interacting]
     Indication: PSYCHOTIC DISORDER
     Route: 030
  4. OLANZAPINE [Interacting]
     Indication: PSYCHOTIC DISORDER
     Dosage: UNK
     Route: 048

REACTIONS (12)
  - ACUTE RESPIRATORY DISTRESS SYNDROME [None]
  - CARDIAC ARREST [None]
  - CARDIO-RESPIRATORY ARREST [None]
  - CYANOSIS [None]
  - DRUG INTERACTION [None]
  - DYSPNOEA [None]
  - ENDOTRACHEAL INTUBATION [None]
  - LOSS OF CONSCIOUSNESS [None]
  - SINUS TACHYCARDIA [None]
  - STRIDOR [None]
  - UPPER AIRWAY OBSTRUCTION [None]
  - WRONG DRUG ADMINISTERED [None]
